FAERS Safety Report 4682903-6 (Version None)
Quarter: 2005Q2

REPORT INFORMATION
  Report Type: 
  Country: None (occurrence: None)
  Receive Date: 20050531
  Receipt Date: 20040414
  Transmission Date: 20051028
  Serious: Yes (Death, Hospitalization)
  Sender: FDA-Public Use
  Company Number: 200316753US

PATIENT
  Age: 86 Year
  Sex: Female
  Weight: 66 kg

DRUGS (12)
  1. LOVENOX [Suspect]
     Indication: CORONARY ANGIOPLASTY
     Dosage: SEE IMAGE
     Route: 058
     Dates: start: 20030708, end: 20030713
  2. LOVENOX [Suspect]
     Indication: CORONARY ANGIOPLASTY
     Dosage: SEE IMAGE
     Route: 058
     Dates: start: 20030715, end: 20030717
  3. LOVENOX [Suspect]
     Indication: CORONARY ANGIOPLASTY
     Dosage: SEE IMAGE
     Route: 058
     Dates: start: 20030718, end: 20030718
  4. . [Concomitant]
  5. . [Concomitant]
  6. LEVOTHYROXINE SODIUM [Concomitant]
  7. SIMVASTATIN [Concomitant]
  8. ASPIRIN [Concomitant]
  9. NORVASC [Concomitant]
  10. AMBIEN [Concomitant]
  11. ACETAMINOPHEN [Concomitant]
  12. DEXTROPROPOXYPHENE NAPSILATE (DARVOCET-N) [Concomitant]

REACTIONS (6)
  - ELECTROCARDIOGRAM QRS COMPLEX ABNORMAL [None]
  - HAEMORRHAGE INTRACRANIAL [None]
  - NODAL ARRHYTHMIA [None]
  - SUBDURAL HAEMATOMA [None]
  - TACHYCARDIA [None]
  - VASCULAR PSEUDOANEURYSM [None]
